FAERS Safety Report 17130381 (Version 1)
Quarter: 2019Q4

REPORT INFORMATION
  Report Type: Spontaneous
  Country: DE (occurrence: DE)
  Receive Date: 20191209
  Receipt Date: 20191209
  Transmission Date: 20200122
  Serious: Yes (Death, Hospitalization, Other)
  Sender: FDA-Public Use
  Company Number: NVSC2019DE061744

PATIENT
  Sex: Female
  Weight: 52 kg

DRUGS (2)
  1. DABRAFENIB [Suspect]
     Active Substance: DABRAFENIB
     Indication: NON-SMALL CELL LUNG CANCER METASTATIC
     Dosage: 100 MG, QD
     Route: 065
     Dates: start: 20180821, end: 20190218
  2. TRAMETINIB [Suspect]
     Active Substance: TRAMETINIB
     Indication: NON-SMALL CELL LUNG CANCER METASTATIC
     Dosage: 1 MG, QD
     Route: 065
     Dates: start: 20180821, end: 20190218

REACTIONS (3)
  - Malignant neoplasm progression [Fatal]
  - Non-small cell lung cancer metastatic [Fatal]
  - General physical health deterioration [Fatal]
